FAERS Safety Report 5741734-6 (Version None)
Quarter: 2008Q2

REPORT INFORMATION
  Report Type: 
  Country: None (occurrence: None)
  Receive Date: 20080519
  Receipt Date: 20061130
  Transmission Date: 20081010
  Serious: No
  Sender: FDA-Public Use
  Company Number: US-BAYER-US-2006-037200

PATIENT
  Age: 47 Year
  Sex: Female
  Weight: 70 kg

DRUGS (3)
  1. ULTRAVIST 300 [Suspect]
     Indication: COMPUTERISED TOMOGRAM
     Dosage: UNIT DOSE: 80 ML
     Route: 042
  2. ALLEGRA [Concomitant]
     Dosage: UNIT DOSE: 180 MG
  3. INDERAL [Concomitant]
     Dosage: UNIT DOSE: 160 MG

REACTIONS (1)
  - URTICARIA [None]
